FAERS Safety Report 21872301 (Version 2)
Quarter: 2023Q1

REPORT INFORMATION
  Report Type: Spontaneous
  Country: US (occurrence: US)
  Receive Date: 20230117
  Receipt Date: 20230119
  Transmission Date: 20230417
  Serious: Yes (Other)
  Sender: FDA-Public Use
  Company Number: US-PFIZER INC-HQ4258302NOV1999

PATIENT
  Age: 55 Year
  Sex: Female

DRUGS (6)
  1. METHOTREXATE SODIUM [Suspect]
     Active Substance: METHOTREXATE SODIUM
     Indication: Rheumatoid arthritis
     Dosage: 7.5 MG, WEEKLY
     Route: 065
     Dates: start: 199204
  2. METHOTREXATE SODIUM [Suspect]
     Active Substance: METHOTREXATE SODIUM
     Indication: Synovitis
     Dosage: 15 MG, WEEKLY, INCREASED OVER THE NEXT FEW MONTHS
  3. NAPROXEN [Concomitant]
     Active Substance: NAPROXEN
     Dosage: 375 MG, 2X/DAY
     Route: 065
     Dates: start: 199204
  4. PREDNISONE [Concomitant]
     Active Substance: PREDNISONE
     Dosage: 5 MG, DAILY
     Dates: start: 1992
  5. PENICILLAMINE [Concomitant]
     Active Substance: PENICILLAMINE
     Dosage: 250 MG, DAILY, DOSE WAS DECREASED BY HALF AFTER A WEEK
     Dates: start: 199408
  6. PENICILLAMINE [Concomitant]
     Active Substance: PENICILLAMINE
     Dosage: 500 UNK

REACTIONS (2)
  - Rheumatoid lung [Recovered/Resolved]
  - Condition aggravated [Recovered/Resolved]

NARRATIVE: CASE EVENT DATE: 19940101
